FAERS Safety Report 14554773 (Version 2)
Quarter: 2018Q1

REPORT INFORMATION
  Report Type: Spontaneous
  Country: FR (occurrence: FR)
  Receive Date: 20180220
  Receipt Date: 20180301
  Transmission Date: 20180509
  Serious: Yes (Life-Threatening, Hospitalization, Other)
  Sender: FDA-Public Use
  Company Number: FR-PFIZER INC-2017391182

PATIENT
  Age: 66 Year
  Sex: Male

DRUGS (6)
  1. RIFAMPICIN [Interacting]
     Active Substance: RIFAMPIN
     Indication: ENDOCARDITIS STAPHYLOCOCCAL
     Dosage: 600 MG, 2X/DAY
  2. RIFAMPICIN [Interacting]
     Active Substance: RIFAMPIN
     Indication: CEREBRAL ARTERY EMBOLISM
  3. GENTAMICIN. [Concomitant]
     Active Substance: GENTAMICIN
     Indication: ENDOCARDITIS STAPHYLOCOCCAL
     Dosage: UNK
  4. GENTAMICIN. [Concomitant]
     Active Substance: GENTAMICIN
     Indication: CEREBRAL ARTERY EMBOLISM
  5. CEFAZOLIN [Interacting]
     Active Substance: CEFAZOLIN
     Indication: CEREBRAL ARTERY EMBOLISM
     Dosage: 8 G, DAILY, (AFTER 12 DAYS OF TREATMENT)
     Route: 042
  6. CEFAZOLIN [Suspect]
     Active Substance: CEFAZOLIN
     Indication: ENDOCARDITIS STAPHYLOCOCCAL
     Dosage: 4 G, DAILY, (INITIALLY)
     Route: 042

REACTIONS (5)
  - Drug interaction [Unknown]
  - Gastrointestinal haemorrhage [Unknown]
  - Shock haemorrhagic [Unknown]
  - Vitamin K deficiency [Recovered/Resolved]
  - Hypoprothrombinaemia [Recovered/Resolved]
